FAERS Safety Report 15594263 (Version 2)
Quarter: 2018Q4

REPORT INFORMATION
  Report Type: Spontaneous
  Country: US (occurrence: US)
  Receive Date: 20181107
  Receipt Date: 20181115
  Transmission Date: 20190205
  Serious: Yes (Hospitalization, Other)
  Sender: FDA-Public Use
  Company Number: US-UNITED THERAPEUTICS-UNT-2018-018270

PATIENT
  Age: 42 Year
  Sex: Female
  Weight: 29.25 kg

DRUGS (1)
  1. REMODULIN [Suspect]
     Active Substance: TREPROSTINIL
     Indication: PULMONARY ARTERIAL HYPERTENSION
     Dosage: 0.008 ?G/KG, CONTINUING
     Route: 041
     Dates: start: 20181102

REACTIONS (3)
  - Epistaxis [Not Recovered/Not Resolved]
  - Headache [Unknown]
  - Haemoptysis [Unknown]

NARRATIVE: CASE EVENT DATE: 20181102
